FAERS Safety Report 5201833-4 (Version None)
Quarter: 2006Q4

REPORT INFORMATION
  Report Type: 
  Country: None (occurrence: None)
  Receive Date: 20061003
  Receipt Date: 20060302
  Transmission Date: 20070319
  Serious: Yes (Other)
  Sender: FDA-Public Use
  Company Number: K200600295

PATIENT
  Sex: 0

DRUGS (2)
  1. SONATA [Suspect]
     Indication: DRUG USE FOR UNKNOWN INDICATION
  2. INSULIN [Concomitant]

REACTIONS (1)
  - BLOOD GLUCOSE INCREASED [None]
